FAERS Safety Report 24903907 (Version 1)
Quarter: 2025Q1

REPORT INFORMATION
  Report Type: Report from Study
  Country: US (occurrence: US)
  Receive Date: 20250130
  Receipt Date: 20250130
  Transmission Date: 20250409
  Serious: Yes (Hospitalization)
  Sender: GILEAD
  Company Number: US-GILEAD-2025-0701740

PATIENT
  Sex: Female

DRUGS (18)
  1. AZTREONAM LYSINE [Suspect]
     Active Substance: AZTREONAM LYSINE
     Indication: Cystic fibrosis lung
     Dosage: RECONSTITUTE WITH 1ML SUPPLIED DILUENT + NEBULIZE EVERY 8 HOURS FOR 28 DAYS ON, 28 DAYS OFF (FOLLOW
     Route: 055
  2. LINEZOLID [Concomitant]
     Active Substance: LINEZOLID
  3. PANCREASE [PANCREATIN] [Concomitant]
  4. PREDNISONE [Concomitant]
     Active Substance: PREDNISONE
  5. TOBRAMYCIN [Concomitant]
     Active Substance: TOBRAMYCIN
  6. AZELASTINE HYDROCHLORIDE [Concomitant]
     Active Substance: AZELASTINE HYDROCHLORIDE
  7. AZITHROMYCIN [Concomitant]
     Active Substance: AZITHROMYCIN
  8. CETIRIZINE HYDROCHLORIDE [Concomitant]
     Active Substance: CETIRIZINE HYDROCHLORIDE
  9. CYPROHEPTADINE [Concomitant]
     Active Substance: CYPROHEPTADINE
  10. DOCUSATE SODIUM [Concomitant]
     Active Substance: DOCUSATE SODIUM
  11. PULMOZYME [Concomitant]
     Active Substance: DORNASE ALFA
  12. ESOMEPRAZOLE [Concomitant]
     Active Substance: ESOMEPRAZOLE
  13. ADVAIR HFA [Concomitant]
     Active Substance: FLUTICASONE PROPIONATE\SALMETEROL XINAFOATE
  14. FLUTICASONE PROPIONATE [Concomitant]
     Active Substance: FLUTICASONE PROPIONATE
  15. IBUPROFEN [Concomitant]
     Active Substance: IBUPROFEN
  16. ALBUTEROL SULFATE [Concomitant]
     Active Substance: ALBUTEROL SULFATE
  17. SODIUM CHLORIDE [Concomitant]
     Active Substance: SODIUM CHLORIDE
  18. AZTREONAM [Concomitant]
     Active Substance: AZTREONAM

REACTIONS (1)
  - Haemoptysis [Unknown]
